FAERS Safety Report 9730511 (Version 1)
Quarter: 2013Q4

REPORT INFORMATION
  Report Type: Spontaneous
  Country: US (occurrence: US)
  Receive Date: 20131202
  Receipt Date: 20131202
  Transmission Date: 20140711
  Serious: No
  Sender: FDA-Public Use
  Company Number: US-009507513-1312USA000316

PATIENT
  Sex: Male

DRUGS (2)
  1. CLARITIN REDITABS 12HR [Suspect]
     Indication: RHINORRHOEA
     Dosage: UNK, UNKNOWN
     Route: 048
  2. CLARITIN REDITABS 12HR [Suspect]
     Indication: HYPERSENSITIVITY

REACTIONS (1)
  - Drug effect delayed [Unknown]
